FAERS Safety Report 11009216 (Version 13)
Quarter: 2016Q1

REPORT INFORMATION
  Report Type: Spontaneous
  Country: US (occurrence: US)
  Receive Date: 20150410
  Receipt Date: 20160122
  Transmission Date: 20160525
  Serious: Yes (Other)
  Sender: FDA-Public Use
  Company Number: US-PFIZER INC-2015119030

PATIENT
  Age: 59 Year
  Sex: Male
  Weight: 122 kg

DRUGS (11)
  1. VITAMIN D [Concomitant]
     Active Substance: CHOLECALCIFEROL
     Dosage: UNK
  2. SUTENT [Suspect]
     Active Substance: SUNITINIB MALATE
     Indication: CLEAR CELL RENAL CELL CARCINOMA
     Dosage: 50 MG, DAILY (28 DAYS ON /14 DAYS OFF)
     Route: 048
     Dates: start: 20150220, end: 20150319
  3. LIPOZENE [Concomitant]
     Active Substance: KONJAC MANNAN
     Dosage: UNK
     Dates: start: 201501, end: 201503
  4. STOOL SOFTENER [Concomitant]
     Active Substance: DOCUSATE CALCIUM
     Dosage: UNK
     Dates: start: 201301
  5. LASIX [Concomitant]
     Active Substance: FUROSEMIDE
     Indication: PERIPHERAL SWELLING
     Dosage: UNK
     Dates: start: 201406
  6. SLOW MAG [Concomitant]
     Active Substance: MAGNESIUM CHLORIDE
     Dosage: UNK
  7. SUTENT [Suspect]
     Active Substance: SUNITINIB MALATE
     Dosage: 50 MG, CYCLIC
     Route: 048
     Dates: start: 20150403, end: 20150430
  8. CALCIUM [Concomitant]
     Active Substance: CALCIUM
     Dosage: UNK
  9. SUTENT [Suspect]
     Active Substance: SUNITINIB MALATE
     Dosage: 50 MG, CYCLIC (28 DAYS ON/14 DAYS OFF)
     Route: 048
     Dates: start: 20150222
  10. SUTENT [Suspect]
     Active Substance: SUNITINIB MALATE
     Dosage: 50 MG, CYCLIC
     Route: 048
     Dates: start: 20150515
  11. PERCOCET [Concomitant]
     Active Substance: ACETAMINOPHEN\OXYCODONE HYDROCHLORIDE
     Indication: OSTEOARTHRITIS
     Dosage: UNK
     Dates: start: 201406

REACTIONS (31)
  - Tumour pain [Recovered/Resolved]
  - Night sweats [Not Recovered/Not Resolved]
  - Blood creatinine increased [Unknown]
  - Dysphonia [Unknown]
  - Hyperhidrosis [Recovered/Resolved]
  - Sinusitis [Recovering/Resolving]
  - Weight decreased [Unknown]
  - Tongue haemorrhage [Unknown]
  - Blood sodium increased [Unknown]
  - Contusion [Unknown]
  - Hair colour changes [Unknown]
  - Blood magnesium decreased [Unknown]
  - Dry skin [Not Recovered/Not Resolved]
  - Rash [Unknown]
  - White blood cell count decreased [Unknown]
  - Skin exfoliation [Not Recovered/Not Resolved]
  - Glomerular filtration rate decreased [Unknown]
  - Swelling face [Unknown]
  - Red cell distribution width increased [Unknown]
  - Osteoporosis [Unknown]
  - Blood urine present [Not Recovered/Not Resolved]
  - Bleeding time prolonged [Recovered/Resolved]
  - Gait disturbance [Unknown]
  - Nasopharyngitis [Unknown]
  - Pain [Unknown]
  - Cough [Recovered/Resolved]
  - Pneumonia [Unknown]
  - Muscle spasms [Unknown]
  - Paraesthesia [Unknown]
  - Otitis media [Recovering/Resolving]
  - Joint injury [Unknown]

NARRATIVE: CASE EVENT DATE: 20150309
